FAERS Safety Report 18382111 (Version 3)
Quarter: 2021Q3

REPORT INFORMATION
  Report Type: Spontaneous
  Country: US (occurrence: US)
  Receive Date: 20201014
  Receipt Date: 20210701
  Transmission Date: 20211014
  Serious: Yes (Death)
  Sender: FDA-Public Use
  Company Number: US-PFIZER INC-2020396339

PATIENT
  Age: 61 Year
  Sex: Male

DRUGS (2)
  1. INLYTA [Suspect]
     Active Substance: AXITINIB
     Indication: RENAL CANCER
     Dosage: 5 MG
  2. INLYTA [Suspect]
     Active Substance: AXITINIB
     Dosage: 1 MG

REACTIONS (2)
  - Death [Fatal]
  - Eating disorder [Unknown]

NARRATIVE: CASE EVENT DATE: 20210429
